FAERS Safety Report 14339492 (Version 1)
Quarter: 2017Q4

REPORT INFORMATION
  Report Type: Spontaneous
  Country: FI (occurrence: FI)
  Receive Date: 20171230
  Receipt Date: 20171230
  Transmission Date: 20180321
  Serious: Yes (Life-Threatening, Other)
  Sender: FDA-Public Use
  Company Number: FI-STRIDES ARCOLAB LIMITED-2017SP014995

PATIENT
  Age: 61 Year
  Sex: Female

DRUGS (11)
  1. FIDAXOMICIN [Suspect]
     Active Substance: FIDAXOMICIN
     Indication: CLOSTRIDIUM DIFFICILE INFECTION
     Dosage: 200 MG, ENTERAL
     Route: 048
  2. VANCOMYCIN [Suspect]
     Active Substance: VANCOMYCIN
     Indication: CLOSTRIDIUM DIFFICILE INFECTION
     Dosage: 250 MG, EVERY 6 HRS
     Route: 048
  3. T4 [Concomitant]
     Active Substance: LEVOTHYROXINE
     Indication: MYXOEDEMA
     Dosage: 500 ?G GIVEN INITIALLY
     Route: 042
  4. T4 [Concomitant]
     Active Substance: LEVOTHYROXINE
     Dosage: 100 ?G, DAY
     Route: 042
  5. TIGECYCLINE. [Suspect]
     Active Substance: TIGECYCLINE
     Dosage: 50 MG, EVERY 12 HRS
     Route: 042
  6. T3 [Concomitant]
     Active Substance: LIOTHYRONINE SODIUM
     Indication: MYXOEDEMA
     Dosage: 5 ?G, EVERY 8 HOURS
     Route: 042
  7. T4 [Concomitant]
     Active Substance: LEVOTHYROXINE
     Dosage: DOSE REDUCED
     Route: 042
  8. T4 [Concomitant]
     Active Substance: LEVOTHYROXINE
     Dosage: UNK
     Route: 048
  9. METRONIDAZOLE. [Suspect]
     Active Substance: METRONIDAZOLE
     Indication: CLOSTRIDIUM DIFFICILE INFECTION
     Dosage: 500 MG, EVERY 8 HRS
     Route: 042
  10. TIGECYCLINE. [Suspect]
     Active Substance: TIGECYCLINE
     Indication: CLOSTRIDIUM DIFFICILE INFECTION
     Dosage: 100 MG, ENTERAL
     Route: 042
  11. T3 [Concomitant]
     Active Substance: LIOTHYRONINE SODIUM
     Dosage: DOSE DECREASED
     Route: 042

REACTIONS (1)
  - Drug ineffective [Unknown]
